FAERS Safety Report 10272836 (Version 1)
Quarter: 2014Q2

REPORT INFORMATION
  Report Type: Spontaneous
  Country: FR (occurrence: None)
  Receive Date: 20140627
  Receipt Date: 20140627
  Transmission Date: 20141212
  Serious: Yes (Death)
  Sender: FDA-Public Use
  Company Number: 2014MPI00727

PATIENT
  Age: 63 Year
  Sex: Male

DRUGS (19)
  1. ADCETRIS [Suspect]
     Indication: ANAPLASTIC LARGE CELL LYMPHOMA T- AND NULL-CELL TYPES
     Dates: start: 20140416, end: 20140416
  2. CYCLOPHOSPHAMIDE (CYCLOPHOSPHAMIDE) [Concomitant]
  3. DOXORUBICIN (DOXORUBICIN HYDROCHLORIDE) [Concomitant]
  4. VINCRISTINE (VINCRISTINE) [Concomitant]
  5. PREDNISONE (PREDNISONE ACETATE) [Concomitant]
  6. METHOTREXATE (METHOTREXATE) [Concomitant]
  7. DEXAMETHASONE (DEXAMETHASONE SODIUM PHOSPHATE) [Concomitant]
  8. CYTARABINE (CYTARABINE) [Concomitant]
  9. CARBOPLATINE (CARBOPLATIN) [Concomitant]
  10. NOVORAPID (INSULIN ASPART) [Concomitant]
  11. CALCIPARINE (HEPARIN CALCIUM) [Concomitant]
  12. PERFALGAN (PARACETAMOL) [Concomitant]
  13. TOPALGIC (TRAMADOL HYDROCHLORIDE) [Concomitant]
  14. ACUPAN (NEFOPAM HYDROCHLORIDE) [Concomitant]
  15. HYDROCORTISONE (HYDROCORTISONE HYDROGEN SUCCINATE) [Concomitant]
  16. BACTRIM (SULFAMETHOXAZOLE, TRIMETHOPRIM) [Concomitant]
  17. SMOFKABIVEN (AMINO ACIDS NOS, ELECTROLYTES NOS, FATS NOS, GLUCOSE) [Concomitant]
  18. CERNEVIT (ASCORBIC ACID, BIOTIN, COCARBOXYLASE TETRAHYDRATE, COLECALCIFEROL, CYANOCOBALAMIN, DEXPANTHENOL, FOLIC ACID, NICOTINAMIDE, PYRIDOXINE HYDROCHLORIDE, RETINOL PALMITATE, RIBOFLAVIN SODIUM PHOSPHATE, TOCOPHEROL) [Concomitant]
  19. ALBUMIN (ALBUMIN HUMAN) [Concomitant]

REACTIONS (1)
  - Hypovolaemic shock [None]
